FAERS Safety Report 6595767-0 (Version None)
Quarter: 2010Q1

REPORT INFORMATION
  Report Type: 
  Country: None (occurrence: None)
  Receive Date: 20100223
  Receipt Date: 20100105
  Transmission Date: 20100710
  Serious: Yes (Death)
  Sender: FDA-Public Use
  Company Number: US-TYCO HEALTHCARE/MALLINCKRODT-T201000484

PATIENT
  Age: 34 Year
  Sex: Female

DRUGS (11)
  1. OXYCODONE HCL AND ACETAMINOPHEN [Suspect]
     Route: 048
  2. METOPROLOL TARTRATE [Suspect]
     Route: 048
  3. CALCIUM ANTAGONIST [Suspect]
     Route: 048
  4. AMITRIPTYLINE HCL [Suspect]
     Route: 048
  5. ZOLPIDEM [Suspect]
     Route: 048
  6. RABEPRAZOLE SODIUM [Suspect]
     Route: 048
  7. ANTIHISTAMINES [Suspect]
     Route: 048
  8. VENLAFAXINE [Suspect]
     Route: 048
  9. PREDNISONE [Suspect]
     Route: 048
  10. SKELETAL MUSCLE RELAXANT [Suspect]
     Route: 048
  11. ZAFIRLUKAST [Suspect]
     Route: 048

REACTIONS (1)
  - COMPLETED SUICIDE [None]
